FAERS Safety Report 10595830 (Version 1)
Quarter: 2014Q4

REPORT INFORMATION
  Report Type: Other
  Country: US (occurrence: US)
  Receive Date: 20141120
  Receipt Date: 20141120
  Transmission Date: 20150529
  Serious: Yes (Hospitalization, Other)
  Sender: FDA-Public Use
  Company Number: US-SHIRE-US201407886

PATIENT
  Age: 52 Year
  Sex: Female

DRUGS (2)
  1. CINRYZE [Suspect]
     Active Substance: HUMAN C1-ESTERASE INHIBITOR
     Indication: PROPHYLAXIS
     Dosage: 1000 UNITS, OTHER AS TREATMENT
     Route: 042
     Dates: start: 201411
  2. CINRYZE [Suspect]
     Active Substance: HUMAN C1-ESTERASE INHIBITOR
     Indication: HEREDITARY ANGIOEDEMA
     Dosage: 1500 UNITS, OTHER, EVERY 72 HOURS
     Route: 042
     Dates: start: 20120920

REACTIONS (7)
  - Brain oedema [Recovered/Resolved]
  - Product use issue [Recovered/Resolved]
  - Pelvic fracture [Unknown]
  - Pharyngeal oedema [Recovered/Resolved]
  - Prescribed overdose [Not Recovered/Not Resolved]
  - Fall [Recovered/Resolved]
  - Hereditary angioedema [Recovered/Resolved]

NARRATIVE: CASE EVENT DATE: 20120920
